FAERS Safety Report 7589508-8 (Version None)
Quarter: 2011Q3

REPORT INFORMATION
  Report Type: 
  Country: None (occurrence: None)
  Receive Date: 20110705
  Receipt Date: 20110623
  Transmission Date: 20111222
  Serious: Yes (Disabling, Other)
  Sender: FDA-Public Use
  Company Number: SK-ROCHE-785369

PATIENT
  Age: 39 Year
  Sex: Male

DRUGS (2)
  1. RIBAVIRIN [Suspect]
     Route: 065
     Dates: start: 20040901, end: 20050701
  2. PEGINTERFERON ALFA-2B [Suspect]
     Route: 065
     Dates: start: 20040901, end: 20050601

REACTIONS (3)
  - LEUKOPENIA [None]
  - ALANINE AMINOTRANSFERASE INCREASED [None]
  - COELIAC DISEASE [None]
